FAERS Safety Report 10384815 (Version 1)
Quarter: 2014Q1

REPORT INFORMATION
  Report Type: Spontaneous
  Country: US (occurrence: None)
  Receive Date: 20140306
  Receipt Date: 20140306
  Transmission Date: 20141002
  Serious: Yes (Other)
  Sender: FDA-Public Use
  Company Number: 163-21880-13042131

PATIENT
  Age: 88 Year
  Sex: Female

DRUGS (4)
  1. REVLIMID (LENALIDOMIDE) (10 MILLIGRAM, CAPSULES) [Suspect]
     Indication: PLASMA CELL MYELOMA
     Route: 048
     Dates: start: 20130212
  2. CALCIUM 500 + D [Concomitant]
  3. OCUVITE EYE HEALTH FORMULATION [Concomitant]
  4. BISOPROLOL-HYDROCHLOROTHIAZIDE [Concomitant]

REACTIONS (3)
  - Dyspnoea [None]
  - Sinus disorder [None]
  - Dry mouth [None]
